FAERS Safety Report 6213840-3 (Version None)
Quarter: 2009Q2

REPORT INFORMATION
  Report Type: 
  Country: None (occurrence: None)
  Receive Date: 20090601
  Receipt Date: 20090601
  Transmission Date: 20091009
  Serious: Yes (Other)
  Sender: FDA-Public Use
  Company Number: None

PATIENT
  Age: 35 Year
  Sex: Male
  Weight: 77.1115 kg

DRUGS (1)
  1. AMBIEN [Suspect]
     Indication: INSOMNIA
     Dosage: 10 MG. AT HS PRN PO
     Route: 048
     Dates: start: 20090101, end: 20090430

REACTIONS (5)
  - ABNORMAL SLEEP-RELATED EVENT [None]
  - AMNESIA [None]
  - IMPRISONMENT [None]
  - LEGAL PROBLEM [None]
  - SOMNAMBULISM [None]
